FAERS Safety Report 12271761 (Version 1)
Quarter: 2016Q2

REPORT INFORMATION
  Report Type: Spontaneous
  Country: US (occurrence: None)
  Receive Date: 20160414
  Receipt Date: 20160414
  Transmission Date: 20160815
  Serious: No
  Sender: FDA-Public Use
  Company Number: None

PATIENT
  Age: 54 Year
  Sex: Male
  Weight: 148.6 kg

DRUGS (1)
  1. GABAPENTIN. [Suspect]
     Active Substance: GABAPENTIN
     Indication: DEPRESSION
     Route: 048
     Dates: start: 20150724, end: 20150928

REACTIONS (3)
  - Depression [None]
  - Suicidal ideation [None]
  - Nightmare [None]

NARRATIVE: CASE EVENT DATE: 20150928
